FAERS Safety Report 9773234 (Version 1)
Quarter: 2013Q4

REPORT INFORMATION
  Report Type: Spontaneous
  Country: US (occurrence: US)
  Receive Date: 20131219
  Receipt Date: 20131219
  Transmission Date: 20140711
  Serious: Yes (Death)
  Sender: FDA-Public Use
  Company Number: US-GLAXOSMITHKLINE-A1054006A

PATIENT
  Age: 71 Year
  Sex: Male

DRUGS (1)
  1. VOTRIENT [Suspect]
     Indication: NEOPLASM MALIGNANT
     Route: 065
     Dates: start: 20130724

REACTIONS (1)
  - Death [Fatal]
